FAERS Safety Report 13402497 (Version 2)
Quarter: 2017Q2

REPORT INFORMATION
  Report Type: Spontaneous
  Country: IT (occurrence: IT)
  Receive Date: 20170404
  Receipt Date: 20170411
  Transmission Date: 20170830
  Serious: Yes (Other)
  Sender: FDA-Public Use
  Company Number: IT-PFIZER INC-2017143010

PATIENT
  Age: 21 Year
  Sex: Female

DRUGS (1)
  1. GENTOMIL [Suspect]
     Active Substance: GENTAMICIN SULFATE
     Indication: INFECTIVE KERATITIS
     Dosage: HIGH DOSE
     Route: 057

REACTIONS (4)
  - Retinal toxicity [Unknown]
  - Sudden visual loss [Unknown]
  - Incorrect route of drug administration [Unknown]
  - Retinal vasculitis [Unknown]
